FAERS Safety Report 7981316-9 (Version None)
Quarter: 2011Q4

REPORT INFORMATION
  Report Type: 
  Country: None (occurrence: None)
  Receive Date: 20111213
  Receipt Date: 20111205
  Transmission Date: 20120403
  Serious: Yes (Hospitalization)
  Sender: FDA-Public Use
  Company Number: AUR-APL-2011-06053

PATIENT
  Age: 42 Year
  Sex: Female

DRUGS (5)
  1. MIRTAZAPINE [Suspect]
     Indication: PRODUCT USED FOR UNKNOWN INDICATION
     Dosage: 7.5 MG (7.5 MG, 1 IN 1 D),ORAL
     Route: 048
     Dates: start: 20110608, end: 20110613
  2. RAMIPRIL [Concomitant]
  3. DULOXETINE HYDROCHLORIDE [Suspect]
     Indication: PRODUCT USED FOR UNKNOWN INDICATION
     Dosage: 30 MG (30 MG, 1 IN 1 D),ORAL, 60 MG (60 MG, 1 IN 1 D),ORAL
     Route: 048
     Dates: start: 20110609
  4. DULOXETINE HYDROCHLORIDE [Suspect]
     Indication: PRODUCT USED FOR UNKNOWN INDICATION
     Dosage: 30 MG (30 MG, 1 IN 1 D),ORAL, 60 MG (60 MG, 1 IN 1 D),ORAL
     Route: 048
     Dates: start: 20110608
  5. CITALOPRAM HYDROBROMIDE [Concomitant]

REACTIONS (1)
  - OEDEMA PERIPHERAL [None]
